FAERS Safety Report 7155911-3 (Version None)
Quarter: 2010Q4

REPORT INFORMATION
  Report Type: 
  Country: None (occurrence: None)
  Receive Date: 20101214
  Receipt Date: 20101129
  Transmission Date: 20110411
  Serious: Yes (Hospitalization)
  Sender: FDA-Public Use
  Company Number: PHHY2010JP54542

PATIENT
  Sex: Male
  Weight: 71 kg

DRUGS (2)
  1. CO-DIOVAN T32564+FCTAB [Suspect]
     Indication: HYPERTENSION
     Dosage: 1 DF, DAILY
     Route: 048
     Dates: start: 20090416, end: 20100216
  2. AMARYL [Concomitant]
     Dosage: 1 DF
     Route: 048
     Dates: start: 20090816

REACTIONS (1)
  - CEREBRAL INFARCTION [None]
